FAERS Safety Report 16108357 (Version 2)
Quarter: 2019Q3

REPORT INFORMATION
  Report Type: Spontaneous
  Country: SE (occurrence: SE)
  Receive Date: 20190323
  Receipt Date: 20190816
  Transmission Date: 20191004
  Serious: Yes (Death)
  Sender: FDA-Public Use
  Company Number: SE-WHANIN PHARM. CO., LTD.-2019M1027763

PATIENT
  Sex: Female

DRUGS (3)
  1. CLOZAPINE. [Suspect]
     Active Substance: CLOZAPINE
     Indication: SCHIZOPHRENIA
     Dosage: UNK
     Route: 065
  2. CLOZAPINE. [Suspect]
     Active Substance: CLOZAPINE
     Dosage: UNK
     Route: 065
     Dates: end: 201812
  3. ARIPIPRAZOLE. [Suspect]
     Active Substance: ARIPIPRAZOLE
     Indication: SCHIZOPHRENIA
     Dosage: UNK
     Route: 065
     Dates: end: 201812

REACTIONS (11)
  - Dysphagia [Fatal]
  - Overdose [Fatal]
  - Dyspnoea [Fatal]
  - Altered state of consciousness [Fatal]
  - Gait disturbance [Fatal]
  - Chills [Fatal]
  - Hallucination, visual [Fatal]
  - Fatigue [Fatal]
  - Salivary hypersecretion [Fatal]
  - Urinary incontinence [Fatal]
  - Abnormal behaviour [Fatal]
